FAERS Safety Report 10742171 (Version 2)
Quarter: 2015Q1

REPORT INFORMATION
  Report Type: Spontaneous
  Country: JP (occurrence: JP)
  Receive Date: 20150127
  Receipt Date: 20150206
  Transmission Date: 20150721
  Serious: Yes (Other)
  Sender: FDA-Public Use
  Company Number: JP-PFIZER INC-2015025990

PATIENT
  Age: 73 Year
  Sex: Male
  Weight: 43 kg

DRUGS (11)
  1. ZOLPIDEM TARTRATE. [Concomitant]
     Active Substance: ZOLPIDEM TARTRATE
  2. RINDERON V [Concomitant]
     Active Substance: BETAMETHASONE VALERATE
  3. SULPIRIDE [Concomitant]
     Active Substance: SULPIRIDE
  4. BETANIS [Concomitant]
     Active Substance: MIRABEGRON
  5. LOXOPROFEN [Concomitant]
     Active Substance: LOXOPROFEN
  6. DENOTAS [Concomitant]
     Active Substance: CALCIUM CARBONATE\CHOLECALCIFEROL\MAGNESIUM CARBONATE
  7. MYCOBUTIN [Suspect]
     Active Substance: RIFABUTIN
     Indication: PULMONARY TUBERCULOSIS
     Dosage: 150 MG, 1X/DAY
     Route: 048
     Dates: start: 20141120, end: 20150109
  8. EBUTOL [Concomitant]
     Active Substance: ETHAMBUTOL HYDROCHLORIDE
  9. PYDOXAL [Concomitant]
     Active Substance: PYRIDOXAL
  10. FENTOS [Interacting]
     Active Substance: FENTANYL
     Indication: BONE NEOPLASM
     Dosage: 14 MG, 1X/DAY
     Route: 062
     Dates: start: 20150103, end: 20150113
  11. ISCOTIN [Concomitant]
     Active Substance: ISONIAZID

REACTIONS (6)
  - Hallucination [Recovering/Resolving]
  - Somnolence [Recovering/Resolving]
  - Hepatic enzyme increased [Recovering/Resolving]
  - Drug interaction [Recovering/Resolving]
  - Delirium [Recovering/Resolving]
  - Drug level increased [Recovering/Resolving]

NARRATIVE: CASE EVENT DATE: 201501
